FAERS Safety Report 24835270 (Version 1)
Quarter: 2025Q1

REPORT INFORMATION
  Report Type: Spontaneous
  Country: CN (occurrence: CN)
  Receive Date: 20250113
  Receipt Date: 20250113
  Transmission Date: 20250409
  Serious: Yes (Life-Threatening, Hospitalization, Other)
  Sender: JIANGSU HANSOH PHARMACEUTICAL
  Company Number: CN-Jiangsu Hansoh Pharmaceutical Co., Ltd-2168943

PATIENT
  Age: 56 Year
  Sex: Male

DRUGS (3)
  1. GEMCITABINE HYDROCHLORIDE [Suspect]
     Active Substance: GEMCITABINE HYDROCHLORIDE
     Indication: Nasopharyngeal cancer
     Dates: start: 20241202, end: 20241202
  2. NEDAPLATIN [Suspect]
     Active Substance: NEDAPLATIN
     Dates: start: 20241202, end: 20241202
  3. TORIPALIMAB [Suspect]
     Active Substance: TORIPALIMAB
     Dates: start: 20241204, end: 20241204

REACTIONS (2)
  - Myelosuppression [Recovering/Resolving]
  - Off label use [Unknown]

NARRATIVE: CASE EVENT DATE: 20241202
